FAERS Safety Report 7022899-5 (Version None)
Quarter: 2010Q3

REPORT INFORMATION
  Report Type: 
  Country: None (occurrence: None)
  Receive Date: 20100916
  Receipt Date: 20100716
  Transmission Date: 20110219
  Serious: No
  Sender: FDA-Public Use
  Company Number: DKLU1063700 (0)

PATIENT
  Age: 14 Year
  Sex: Female

DRUGS (1)
  1. SABRIL [Suspect]
     Indication: EPILEPSY
     Dosage: 500 MG MILLIGRAM (S), 2 IN 1 D, ORAL
     Route: 048
     Dates: start: 20100401

REACTIONS (3)
  - CONSTIPATION [None]
  - INCREASED APPETITE [None]
  - WEIGHT INCREASED [None]
